FAERS Safety Report 23052860 (Version 2)
Quarter: 2024Q2

REPORT INFORMATION
  Report Type: Report from Study
  Country: US (occurrence: US)
  Receive Date: 20231011
  Receipt Date: 20240417
  Transmission Date: 20240716
  Serious: Yes (Other)
  Sender: FDA-Public Use
  Company Number: US-JAZZ PHARMACEUTICALS-2023-US-020655

PATIENT
  Sex: Female
  Weight: 10.8 kg

DRUGS (5)
  1. EPIDIOLEX [Suspect]
     Active Substance: CANNABIDIOL
     Indication: Epilepsy
     Dosage: 0.75 MILLILITER, BID
     Route: 048
     Dates: start: 20230826
  2. EPIDIOLEX [Suspect]
     Active Substance: CANNABIDIOL
     Dosage: 1.5 MILLILITER, BID
     Route: 048
     Dates: start: 20230826
  3. CLOBAZAM [Concomitant]
     Active Substance: CLOBAZAM
     Indication: Product used for unknown indication
  4. BIFIDOBACTERIUM ANIMALIS LACTIS [Concomitant]
     Active Substance: BIFIDOBACTERIUM ANIMALIS LACTIS
     Indication: Product used for unknown indication
  5. MULTIVITAMIN GUMMY BEARS [Concomitant]

REACTIONS (6)
  - Seizure [Unknown]
  - Infection [Unknown]
  - Mood altered [Unknown]
  - Insomnia [Unknown]
  - Off label use [Unknown]
  - Product dose omission issue [Unknown]
